FAERS Safety Report 16473223 (Version 1)
Quarter: 2019Q2

REPORT INFORMATION
  Report Type: Spontaneous
  Country: US (occurrence: US)
  Receive Date: 20190625
  Receipt Date: 20190625
  Transmission Date: 20190711
  Serious: Yes (Hospitalization, Other)
  Sender: FDA-Public Use
  Company Number: US-GLAXOSMITHKLINE-US2019110481

PATIENT
  Sex: Female

DRUGS (2)
  1. CARVEDILOL. [Suspect]
     Active Substance: CARVEDILOL
     Indication: PRODUCT USED FOR UNKNOWN INDICATION
     Dosage: ABOUT 1 OR 2 WEEKS
     Route: 065
  2. COREG [Suspect]
     Active Substance: CARVEDILOL
     Indication: PRODUCT USED FOR UNKNOWN INDICATION
     Dosage: 3.125 MG, BID
     Route: 065

REACTIONS (12)
  - Fatigue [Recovered/Resolved]
  - Wrong technique in product usage process [Unknown]
  - Bronchiectasis [Unknown]
  - Ill-defined disorder [Unknown]
  - Cough [Not Recovered/Not Resolved]
  - Palpitations [Recovered/Resolved]
  - Dyspnoea [Recovered/Resolved]
  - Mycobacterium avium complex infection [Unknown]
  - Cardiac failure [Recovered/Resolved]
  - Traumatic lung injury [Unknown]
  - Heart rate irregular [Recovered/Resolved]
  - Hypotension [Unknown]
